FAERS Safety Report 18752147 (Version 1)
Quarter: 2021Q1

REPORT INFORMATION
  Report Type: Spontaneous
  Country: US (occurrence: US)
  Receive Date: 20210118
  Receipt Date: 20210118
  Transmission Date: 20210419
  Serious: No
  Sender: FDA-Public Use
  Company Number: US-FOUNDATIONCONSUMERHC-2020-US-020390

PATIENT
  Age: 31 Year
  Sex: Female
  Weight: 104.33 kg

DRUGS (2)
  1. ONE A DAY WOMENS VITAMINS [Concomitant]
  2. PLAN B ONE?STEP [Suspect]
     Active Substance: LEVONORGESTREL
     Indication: POST COITAL CONTRACEPTION
     Dosage: 1.5 MG
     Route: 048
     Dates: start: 20200705, end: 20200705

REACTIONS (4)
  - Vaginal haemorrhage [Recovered/Resolved]
  - Menstruation irregular [Not Recovered/Not Resolved]
  - Vaginal haemorrhage [Not Recovered/Not Resolved]
  - Menstruation delayed [Unknown]

NARRATIVE: CASE EVENT DATE: 202008
